FAERS Safety Report 25371914 (Version 4)
Quarter: 2025Q2

REPORT INFORMATION
  Report Type: Spontaneous
  Country: US (occurrence: US)
  Receive Date: 20250529
  Receipt Date: 20250623
  Transmission Date: 20250717
  Serious: Yes (Life-Threatening)
  Sender: SANOFI AVENTIS
  Company Number: US-SANOFI-02533543

PATIENT
  Sex: Male

DRUGS (1)
  1. TOUJEO [Suspect]
     Active Substance: INSULIN GLARGINE
     Indication: Diabetes mellitus
     Route: 065

REACTIONS (4)
  - General physical health deterioration [Unknown]
  - Renal disorder [Unknown]
  - Glycosylated haemoglobin increased [Unknown]
  - Device mechanical issue [Unknown]
